FAERS Safety Report 21579310 (Version 1)
Quarter: 2022Q4

REPORT INFORMATION
  Report Type: Spontaneous
  Country: US (occurrence: None)
  Receive Date: 20221110
  Receipt Date: 20221110
  Transmission Date: 20230112
  Serious: Yes (Death, Hospitalization)
  Sender: FDA-Public Use
  Company Number: None

PATIENT
  Age: 87 Year
  Sex: Male
  Weight: 45.35 kg

DRUGS (3)
  1. APIXABAN [Suspect]
     Active Substance: APIXABAN
     Indication: Atrial fibrillation
     Dosage: FREQUENCY : TWICE A DAY;?
     Route: 048
     Dates: start: 20220821, end: 20220914
  2. CLOPIDOGREL [Concomitant]
     Active Substance: CLOPIDOGREL BISULFATE
  3. ASPIRIN [Concomitant]
     Active Substance: ASPIRIN

REACTIONS (10)
  - Upper gastrointestinal haemorrhage [None]
  - Shock [None]
  - Cardiac arrest [None]
  - Blood creatinine increased [None]
  - Transfusion [None]
  - Coagulation factor [None]
  - Blood product refusal [None]
  - Refusal of treatment by patient [None]
  - Hypoxic-ischaemic encephalopathy [None]
  - Coma [None]

NARRATIVE: CASE EVENT DATE: 20220914
